FAERS Safety Report 17094523 (Version 2)
Quarter: 2019Q4

REPORT INFORMATION
  Report Type: Spontaneous
  Country: US (occurrence: US)
  Receive Date: 20191129
  Receipt Date: 20191213
  Transmission Date: 20200122
  Serious: No
  Sender: FDA-Public Use
  Company Number: US-CELGENEUS-USA-20191109696

PATIENT
  Age: 71 Year
  Sex: Female

DRUGS (6)
  1. BETAMETHASON DIPROPIONATE [Concomitant]
     Indication: PRODUCT USED FOR UNKNOWN INDICATION
     Dosage: 0.1 PERCENT
     Route: 061
     Dates: start: 20191101
  2. OTEZLA [Suspect]
     Active Substance: APREMILAST
     Indication: OFF LABEL USE
  3. KETOCONAZOLE. [Concomitant]
     Active Substance: KETOCONAZOLE
     Indication: TINEA PEDIS
     Dosage: 4 PERCENT
     Route: 061
     Dates: start: 20191101
  4. OTEZLA [Suspect]
     Active Substance: APREMILAST
     Indication: DERMATOMYOSITIS
     Dosage: 30 MILLIGRAM
     Route: 048
     Dates: start: 20191101, end: 20191129
  5. TACROLIMUS. [Concomitant]
     Active Substance: TACROLIMUS
     Indication: DERMATOMYOSITIS
     Dosage: 0.1 PERCENT
     Route: 061
     Dates: start: 20191101
  6. KENALOG [Concomitant]
     Active Substance: TRIAMCINOLONE ACETONIDE
     Indication: DERMATOMYOSITIS
     Dosage: 0.1 CC
     Route: 065
     Dates: start: 20191101, end: 20191101

REACTIONS (2)
  - Dyspepsia [Recovered/Resolved]
  - Diarrhoea [Recovered/Resolved]

NARRATIVE: CASE EVENT DATE: 20191101
